FAERS Safety Report 11170041 (Version 12)
Quarter: 2015Q4

REPORT INFORMATION
  Report Type: Report from Study
  Country: CA (occurrence: CA)
  Receive Date: 20150608
  Receipt Date: 20151006
  Transmission Date: 20160304
  Serious: Yes (Life-Threatening, Other)
  Sender: FDA-Public Use
  Company Number: CA-ROCHE-1375931

PATIENT
  Age: 72 Year
  Sex: Male
  Weight: 80.1 kg

DRUGS (20)
  1. FOLINIC ACID [Suspect]
     Active Substance: LEUCOVORIN
     Route: 042
     Dates: start: 201404
  2. IRINOTECAN [Suspect]
     Active Substance: IRINOTECAN
     Indication: PRODUCT USED FOR UNKNOWN INDICATION
     Route: 042
     Dates: start: 20120515, end: 20120515
  3. FRAGMIN [Concomitant]
     Active Substance: DALTEPARIN SODIUM
     Dosage: TAKEN BEFORE AVASTIN
     Route: 065
  4. PLAVIX [Concomitant]
     Active Substance: CLOPIDOGREL BISULFATE
     Route: 065
     Dates: start: 201312
  5. BABY ASPIRIN [Concomitant]
     Active Substance: ASPIRIN
     Route: 065
     Dates: start: 201312
  6. FOLINIC ACID [Suspect]
     Active Substance: LEUCOVORIN
     Indication: COLORECTAL CANCER
     Route: 042
     Dates: start: 20120515, end: 20120515
  7. FOLINIC ACID [Suspect]
     Active Substance: LEUCOVORIN
     Route: 042
     Dates: start: 201312, end: 201402
  8. FLUOROURACIL. [Suspect]
     Active Substance: FLUOROURACIL
     Route: 042
     Dates: start: 201404
  9. OXALIPLATIN. [Suspect]
     Active Substance: OXALIPLATIN
     Indication: COLORECTAL CANCER
     Route: 065
     Dates: start: 201404
  10. FLUOROURACIL. [Suspect]
     Active Substance: FLUOROURACIL
     Indication: COLORECTAL CANCER
     Route: 042
     Dates: start: 20120515, end: 20120515
  11. AVASTIN [Suspect]
     Active Substance: BEVACIZUMAB
     Route: 042
     Dates: start: 20150505
  12. ROSUVASTATIN [Concomitant]
     Active Substance: ROSUVASTATIN
     Route: 065
     Dates: start: 201312
  13. PANTOLOC [Concomitant]
     Active Substance: PANTOPRAZOLE SODIUM
     Route: 065
     Dates: start: 201312
  14. FLUOROURACIL. [Suspect]
     Active Substance: FLUOROURACIL
     Route: 042
     Dates: start: 201312, end: 201402
  15. COVERSYL [Concomitant]
     Active Substance: PERINDOPRIL
     Route: 065
     Dates: start: 201312
  16. IRINOTECAN [Suspect]
     Active Substance: IRINOTECAN
     Route: 042
     Dates: start: 201312, end: 201402
  17. AVASTIN [Suspect]
     Active Substance: BEVACIZUMAB
     Indication: COLORECTAL CANCER
     Dosage: UNKNOWN
     Route: 042
     Dates: start: 20120515, end: 201311
  18. AVASTIN [Suspect]
     Active Substance: BEVACIZUMAB
     Dosage: FIRST RPAP DOSE
     Route: 042
     Dates: start: 20140506
  19. PERINDOPRIL [Concomitant]
     Active Substance: PERINDOPRIL
     Route: 065
     Dates: start: 201312
  20. BISOPROLOL [Concomitant]
     Active Substance: BISOPROLOL
     Route: 065
     Dates: start: 201312

REACTIONS (35)
  - Liver disorder [Unknown]
  - Hepatic lesion [Unknown]
  - Red blood cell count decreased [Not Recovered/Not Resolved]
  - Dysphagia [Not Recovered/Not Resolved]
  - Poor venous access [Not Recovered/Not Resolved]
  - Dehydration [Unknown]
  - Movement disorder [Not Recovered/Not Resolved]
  - Blood pressure increased [Unknown]
  - Haematocrit decreased [Not Recovered/Not Resolved]
  - Infusion related reaction [Unknown]
  - Arthralgia [Not Recovered/Not Resolved]
  - Mean cell volume increased [Not Recovered/Not Resolved]
  - Mean cell haemoglobin increased [Not Recovered/Not Resolved]
  - Haemoglobin decreased [Not Recovered/Not Resolved]
  - Paraesthesia [Unknown]
  - Neuropathy peripheral [Not Recovered/Not Resolved]
  - Myocardial infarction [Unknown]
  - Diverticulitis [Unknown]
  - Red cell distribution width increased [Not Recovered/Not Resolved]
  - Platelet count decreased [Recovering/Resolving]
  - Hypersomnia [Not Recovered/Not Resolved]
  - Ligament sprain [Unknown]
  - Drug ineffective [Unknown]
  - White blood cell count decreased [Recovering/Resolving]
  - Oxygen saturation decreased [Unknown]
  - Fluid intake reduced [Unknown]
  - Neutrophil count decreased [Unknown]
  - Disease progression [Unknown]
  - Fall [Unknown]
  - Activities of daily living impaired [Not Recovered/Not Resolved]
  - Oxygen saturation decreased [Unknown]
  - Drug effect decreased [Unknown]
  - Fatigue [Unknown]
  - Monocyte count increased [Unknown]
  - Basophil count increased [Unknown]

NARRATIVE: CASE EVENT DATE: 201311
